FAERS Safety Report 9771975 (Version 1)
Quarter: 2013Q4

REPORT INFORMATION
  Report Type: Spontaneous
  Country: US (occurrence: None)
  Receive Date: 20131001
  Receipt Date: 20131001
  Transmission Date: 20140711
  Serious: Yes (Other)
  Sender: FDA-Public Use
  Company Number: ADR-2013225161

PATIENT
  Sex: Female

DRUGS (1)
  1. GEMFIBROZIL (GEMFIBROZIL) [Suspect]
     Route: 048

REACTIONS (1)
  - Chest pain [None]
